FAERS Safety Report 15887277 (Version 1)
Quarter: 2019Q1

REPORT INFORMATION
  Report Type: Spontaneous
  Country: US (occurrence: US)
  Receive Date: 20190130
  Receipt Date: 20190130
  Transmission Date: 20190417
  Serious: No
  Sender: FDA-Public Use
  Company Number: US-009507513-1901USA010833

PATIENT
  Age: 59 Year
  Sex: Female

DRUGS (4)
  1. METOPROLOL. [Concomitant]
     Active Substance: METOPROLOL
  2. LASIX [Concomitant]
     Active Substance: FUROSEMIDE
  3. JAKAFI [Suspect]
     Active Substance: RUXOLITINIB
     Indication: MYELOFIBROSIS
     Dosage: 20 MILLIGRAM, BID
     Route: 048
     Dates: start: 20181213
  4. COZAAR [Suspect]
     Active Substance: LOSARTAN POTASSIUM

REACTIONS (1)
  - Blood potassium increased [Not Recovered/Not Resolved]

NARRATIVE: CASE EVENT DATE: 20190103
